FAERS Safety Report 9081209 (Version 2)
Quarter: 2013Q1

REPORT INFORMATION
  Report Type: Report from Study
  Country: JP (occurrence: JP)
  Receive Date: 20130130
  Receipt Date: 20130226
  Transmission Date: 20140127
  Serious: Yes (Other)
  Sender: FDA-Public Use
  Company Number: JP-OTSUKA-JP-2013-10148

PATIENT
  Age: 63 Year
  Sex: Male
  Weight: 73 kg

DRUGS (21)
  1. SAMSCA [Suspect]
     Indication: FLUID RETENTION
     Dosage: 7.5 MG MILLIGRAM(S), QAM
     Route: 048
     Dates: start: 20121220, end: 20121221
  2. SAMSCA [Suspect]
     Dosage: 7.5 MG MILLIGRAM(S), QOD
     Route: 048
     Dates: start: 20121222, end: 20121223
  3. SAMSCA [Suspect]
     Dosage: 15 MG MILLIGRAM(S), QAM
     Route: 048
     Dates: start: 20121224, end: 20121226
  4. SAMSCA [Suspect]
     Dosage: 7.5 MG MILLIGRAM(S), QAM
     Route: 048
     Dates: start: 20121227, end: 20121231
  5. SAMSCA [Suspect]
     Dosage: 7.5 MG MILLIGRAM(S), QOD
     Route: 048
     Dates: start: 20130101, end: 20130104
  6. SAMSCA [Suspect]
     Dosage: 7.5 MG MILLIGRAM(S), QAM
     Route: 048
     Dates: start: 20130105, end: 20130110
  7. SAMSCA [Suspect]
     Dosage: 15 MG MILLIGRAM(S), QAM
     Route: 048
     Dates: start: 20130111
  8. ANCARON [Suspect]
     Dosage: 200 MG MILLIGRAM(S), DAILY DOSE
     Route: 048
     Dates: end: 20130107
  9. ALDACTONE A [Concomitant]
     Indication: CARDIAC FAILURE
     Dosage: 50 MG MILLIGRAM(S), DAILY DOSE
     Route: 048
     Dates: end: 20121231
  10. ALDACTONE A [Concomitant]
     Dosage: 25 MG MILLIGRAM(S), DAILY DOSE
     Route: 048
     Dates: start: 20130107
  11. ARTIST [Concomitant]
     Indication: CARDIAC FAILURE
     Dosage: 20 MG MILLIGRAM(S), DAILY DOSE
     Route: 048
  12. RIBALL [Concomitant]
     Dosage: 200 MG MILLIGRAM(S), DAILY DOSE
     Route: 048
  13. LASIX [Concomitant]
     Indication: CARDIAC FAILURE
     Dosage: 40 MG MILLIGRAM(S), DAILY DOSE
     Route: 048
  14. RENIVEZE [Concomitant]
     Indication: CARDIAC FAILURE
     Dosage: 5 MG MILLIGRAM(S), DAILY DOSE
     Route: 048
  15. LANTUS [Concomitant]
     Dosage: 13 IU, DAILY DOSE
     Route: 058
  16. HUMALOG [Concomitant]
     Dosage: 31 IU, DAILY DOSE
     Route: 058
  17. WARFARIN [Concomitant]
     Dosage: 2 MG MILLIGRAM(S), DAILY DOSE
     Route: 048
  18. BAYASPIRIN [Concomitant]
     Dosage: 100 MG MILLIGRAM(S), DAILY DOSE
     Route: 048
  19. PARIET [Concomitant]
     Dosage: 10 MG MILLIGRAM(S), DAILY DOSE
     Route: 048
  20. SELBEX [Concomitant]
     Dosage: 150 MG MILLIGRAM(S), DAILY DOSE
     Route: 048
  21. PURSENNID [Concomitant]
     Dosage: 24 MG MILLIGRAM(S), DAILY DOSE
     Route: 048

REACTIONS (3)
  - Hypothyroidism [Not Recovered/Not Resolved]
  - Hyperkalaemia [Recovered/Resolved]
  - Blood creatinine increased [Recovered/Resolved]
